FAERS Safety Report 12612092 (Version 2)
Quarter: 2016Q4

REPORT INFORMATION
  Report Type: Spontaneous
  Country: US (occurrence: US)
  Receive Date: 20160801
  Receipt Date: 20161021
  Transmission Date: 20170207
  Serious: Yes (Other)
  Sender: FDA-Public Use
  Company Number: US-JNJFOC-20160719704

PATIENT
  Age: 24 Year
  Sex: Female

DRUGS (1)
  1. MONONESSA [Suspect]
     Active Substance: ETHINYL ESTRADIOL\NORGESTIMATE
     Indication: PRODUCT USED FOR UNKNOWN INDICATION
     Dosage: FOR THE PAST THREE YEARS
     Route: 048
     Dates: start: 20140104, end: 20160713

REACTIONS (3)
  - Abortion missed [Unknown]
  - Pregnancy on oral contraceptive [Unknown]
  - Exposure during pregnancy [Unknown]

NARRATIVE: CASE EVENT DATE: 2016
